FAERS Safety Report 4597612-1 (Version None)
Quarter: 2005Q1

REPORT INFORMATION
  Report Type: 
  Country: None (occurrence: None)
  Receive Date: 20050228
  Receipt Date: 20050228
  Transmission Date: 20050727
  Serious: Yes (Hospitalization)
  Sender: FDA-Public Use
  Company Number: None

PATIENT
  Sex: Male

DRUGS (7)
  1. FUROSEMIDE [Suspect]
     Dosage: 40 MG DAILY ORAL
     Route: 048
  2. METOLAZONE [Suspect]
     Dosage: 2.5 MG DAILY ORAL
     Route: 048
  3. POTASSIUM CHLORIDE [Concomitant]
  4. MULTI-VITAMIN [Concomitant]
  5. LACTULOSE [Concomitant]
  6. OMEPRAZOLE [Concomitant]
  7. PROPRANOLOL [Concomitant]

REACTIONS (2)
  - BLOOD POTASSIUM DECREASED [None]
  - ELECTROCARDIOGRAM ABNORMAL [None]
